FAERS Safety Report 14353260 (Version 1)
Quarter: 2018Q1

REPORT INFORMATION
  Report Type: Spontaneous
  Country: TR (occurrence: TR)
  Receive Date: 20180105
  Receipt Date: 20180105
  Transmission Date: 20180509
  Serious: Yes (Other)
  Sender: FDA-Public Use
  Company Number: TR-CIPLA LTD.-2017TR29596

PATIENT

DRUGS (5)
  1. PRASUGREL. [Suspect]
     Active Substance: PRASUGREL
     Indication: MYOCARDIAL INFARCTION
     Dosage: 10 MG, DAILY
     Route: 065
     Dates: start: 2014
  2. DILTIAZEM. [Suspect]
     Active Substance: DILTIAZEM
     Indication: MYOCARDIAL INFARCTION
     Dosage: 90 MG, DAILY
     Route: 065
     Dates: start: 2014
  3. ENOXAPARIN [Suspect]
     Active Substance: ENOXAPARIN
     Indication: MYOCARDIAL INFARCTION
     Dosage: 160 MG, DAILY
     Route: 065
     Dates: start: 2014
  4. CLOPIDOGREL [Concomitant]
     Active Substance: CLOPIDOGREL BISULFATE
     Indication: MYOCARDIAL INFARCTION
     Dosage: 150 MG, DAILY
     Route: 065
  5. ATORVASTATIN [Suspect]
     Active Substance: ATORVASTATIN
     Indication: MYOCARDIAL INFARCTION
     Dosage: 10 MG, DAILY
     Route: 065
     Dates: start: 2014

REACTIONS (3)
  - Dermatomyositis [Recovered/Resolved]
  - Muscular weakness [Unknown]
  - Blood creatine phosphokinase increased [Unknown]

NARRATIVE: CASE EVENT DATE: 201411
